FAERS Safety Report 4490545-0 (Version None)
Quarter: 2004Q4

REPORT INFORMATION
  Report Type: 
  Country: None (occurrence: None)
  Receive Date: 20041028
  Receipt Date: 20041015
  Transmission Date: 20050328
  Serious: Yes (Other)
  Sender: FDA-Public Use
  Company Number: 2004239398JP

PATIENT
  Age: 37 Year
  Sex: Male
  Weight: 67 kg

DRUGS (7)
  1. DOXORUBICIN HYDROCHLORIDE [Suspect]
     Indication: LYMPHOMA
     Dosage: 90 MG, EVERY 3 WEEKS, CYCLE 5, IV
     Route: 042
     Dates: start: 20040319, end: 20040611
  2. NEU-UP (NARTOGRASTIM) [Suspect]
     Indication: NEUTROPENIA
     Dosage: 50 UG, QD, SUBCUTANEOUS
     Route: 058
     Dates: start: 20040408, end: 20040628
  3. RITUXAN [Suspect]
     Indication: LYMPHOMA
     Dosage: 690 MG, QD, CYCLE 3, IV
     Route: 042
     Dates: start: 20040423, end: 20040604
  4. ONCOVIN [Suspect]
     Indication: LYMPHOMA
     Dosage: 2 MG, EVERY 3 WEEKS, CYCLE 5, IV
     Route: 042
     Dates: start: 20040319, end: 20040611
  5. CYCLOPHOSPHAMIDE [Suspect]
     Indication: LYMPHOMA
     Dosage: 1400 MG, EVERY 3 WEEKS, CYCLE 5, IV
     Route: 042
     Dates: start: 20040319, end: 20040611
  6. PREDNISOLONE [Suspect]
     Indication: LYMPHOMA
     Dosage: SEE IMAGE
     Route: 048
     Dates: start: 20040319
  7. PREDNISOLONE [Suspect]
     Indication: LYMPHOMA
     Dosage: SEE IMAGE
     Route: 048
     Dates: start: 20040704

REACTIONS (4)
  - BLOOD LACTATE DEHYDROGENASE INCREASED [None]
  - BONE MARROW DEPRESSION [None]
  - DRUG INEFFECTIVE [None]
  - INTERSTITIAL LUNG DISEASE [None]
